FAERS Safety Report 4754300-6 (Version None)
Quarter: 2005Q3

REPORT INFORMATION
  Report Type: 
  Country: None (occurrence: None)
  Receive Date: 20050825
  Receipt Date: 20050812
  Transmission Date: 20060218
  Serious: Yes (Other)
  Sender: FDA-Public Use
  Company Number: 2005115933

PATIENT
  Age: 50 Year
  Sex: Male
  Weight: 68.0396 kg

DRUGS (11)
  1. ZITHROMAX [Suspect]
     Indication: PYREXIA
     Dosage: 1 TABLET (1 IN 1 TOTAL), ORAL
     Route: 048
     Dates: start: 20050811, end: 20050811
  2. DIGOXIN [Concomitant]
  3. BUMEX [Concomitant]
  4. POTASSIUM CHLORIDE [Concomitant]
  5. CARDIZEM [Concomitant]
  6. BACLOFEN [Concomitant]
  7. ALBUTEROL [Concomitant]
  8. VALIUM [Concomitant]
  9. SEROQUEL [Concomitant]
  10. COUMADIN [Concomitant]
  11. ASPIRIN [Concomitant]

REACTIONS (3)
  - CHLOROPSIA [None]
  - DIZZINESS [None]
  - HALLUCINATION [None]
